FAERS Safety Report 5711933-8 (Version None)
Quarter: 2008Q2

REPORT INFORMATION
  Report Type: 
  Country: None (occurrence: None)
  Receive Date: 20080421
  Receipt Date: 20080409
  Transmission Date: 20081010
  Serious: Yes (Other)
  Sender: FDA-Public Use
  Company Number: FR-ELI_LILLY_AND_COMPANY-FR200804003013

PATIENT
  Age: 40 Year
  Sex: Male

DRUGS (4)
  1. CYMBALTA [Suspect]
     Indication: NEURALGIA
     Dosage: 60 MG, DAILY (1/D)
     Route: 048
     Dates: start: 20080320, end: 20080323
  2. TRAMADOL HCL [Concomitant]
     Indication: NEURALGIA
     Dosage: 200 MG, DAILY (1/D)
     Route: 048
     Dates: start: 20060101
  3. LYRICA [Concomitant]
     Indication: NEURALGIA
     Dosage: 150 MG, DAILY (1/D)
     Route: 048
     Dates: start: 20060101
  4. CORTICOSTEROID NOS [Concomitant]
     Indication: NEURALGIA
     Dosage: UNK, UNKNOWN
     Route: 014
     Dates: start: 20080319

REACTIONS (1)
  - DELIRIUM [None]
